FAERS Safety Report 5248905-6 (Version None)
Quarter: 2007Q1

REPORT INFORMATION
  Report Type: 
  Country: None (occurrence: None)
  Receive Date: 20070222
  Receipt Date: 20070216
  Transmission Date: 20070707
  Serious: Yes (Death)
  Sender: FDA-Public Use
  Company Number: 2006BI017549

PATIENT
  Sex: Male

DRUGS (13)
  1. AVONEX [Suspect]
     Indication: DRUG USE FOR UNKNOWN INDICATION
     Dates: start: 20030301, end: 20040401
  2. PROTONIX [Concomitant]
  3. DETROL [Concomitant]
  4. FLOMAX [Concomitant]
  5. IMIPRAMINE [Concomitant]
  6. PRINIVIL [Concomitant]
  7. ZOLOFT [Concomitant]
  8. BACLOFEN [Concomitant]
  9. ASCORBIC ACID [Concomitant]
  10. B12 [Concomitant]
  11. ZINC [Concomitant]
  12. MIRALAX [Concomitant]
  13. MAGNESIUM [Concomitant]

REACTIONS (6)
  - BEDRIDDEN [None]
  - DEPRESSION [None]
  - ILL-DEFINED DISORDER [None]
  - MYELOPATHY [None]
  - OBESITY [None]
  - PULMONARY EMBOLISM [None]
